FAERS Safety Report 7071655-0 (Version None)
Quarter: 2010Q4

REPORT INFORMATION
  Report Type: 
  Country: None (occurrence: None)
  Receive Date: 20101029
  Receipt Date: 20090929
  Transmission Date: 20110411
  Serious: No
  Sender: FDA-Public Use
  Company Number: A0810024A

PATIENT
  Sex: Female

DRUGS (2)
  1. ADVAIR DISKUS 100/50 [Suspect]
     Indication: PRODUCT USED FOR UNKNOWN INDICATION
     Dosage: 1PUFF IN THE MORNING
     Route: 055
     Dates: start: 20090901
  2. ZYRTEC [Concomitant]

REACTIONS (1)
  - INCREASED UPPER AIRWAY SECRETION [None]
